FAERS Safety Report 18301899 (Version 1)
Quarter: 2020Q3

REPORT INFORMATION
  Report Type: Spontaneous
  Country: NO (occurrence: NO)
  Receive Date: 20200923
  Receipt Date: 20200923
  Transmission Date: 20201103
  Serious: Yes (Other)
  Sender: FDA-Public Use
  Company Number: NO-PFIZER INC-2020362683

PATIENT
  Age: 64 Year
  Sex: Female

DRUGS (4)
  1. IBRANCE [Suspect]
     Active Substance: PALBOCICLIB
     Indication: INVASIVE DUCTAL BREAST CARCINOMA
     Dosage: FULL DOSE
     Dates: start: 20190117, end: 201910
  2. LETROZOLE. [Concomitant]
     Active Substance: LETROZOLE
     Indication: INVASIVE DUCTAL BREAST CARCINOMA
     Dosage: UNK
     Dates: start: 201812, end: 202003
  3. IBRANCE [Suspect]
     Active Substance: PALBOCICLIB
     Indication: HORMONE RECEPTOR POSITIVE BREAST CANCER
     Dosage: 100 MG
     Dates: start: 201910, end: 202003
  4. LETROZOLE. [Concomitant]
     Active Substance: LETROZOLE
     Indication: HORMONE RECEPTOR POSITIVE BREAST CANCER

REACTIONS (7)
  - Neoplasm progression [Unknown]
  - Neuropathy peripheral [Unknown]
  - Hypercalcaemia [Unknown]
  - Myelosuppression [Unknown]
  - Dyspnoea [Unknown]
  - Fatigue [Unknown]
  - Pleural effusion [Unknown]

NARRATIVE: CASE EVENT DATE: 2019
